FAERS Safety Report 5073244-6 (Version None)
Quarter: 2006Q3

REPORT INFORMATION
  Report Type: 
  Country: None (occurrence: None)
  Receive Date: 20060710
  Receipt Date: 20060509
  Transmission Date: 20061208
  Serious: Yes (Hospitalization, Other)
  Sender: FDA-Public Use
  Company Number: US-2006-007782

PATIENT
  Age: 72 Year
  Sex: Male

DRUGS (4)
  1. ULTRAVIST 300 [Suspect]
     Indication: COMPUTERISED TOMOGRAM
     Dosage: 125 ML, 1 DOSE, INTRAVENOUS
     Route: 042
     Dates: start: 20060404, end: 20060404
  2. CALAN [Concomitant]
  3. COUMADIN [Concomitant]
  4. ZYPREXA [Concomitant]

REACTIONS (5)
  - BLOOD PRESSURE INCREASED [None]
  - CHEST DISCOMFORT [None]
  - LOSS OF CONSCIOUSNESS [None]
  - NAUSEA [None]
  - PRURITUS [None]
